FAERS Safety Report 21903296 (Version 2)
Quarter: 2024Q2

REPORT INFORMATION
  Report Type: Spontaneous
  Country: US (occurrence: US)
  Receive Date: 20230124
  Receipt Date: 20240526
  Transmission Date: 20240716
  Serious: No
  Sender: FDA-Public Use
  Company Number: US-SA-SAC20230120001831

PATIENT
  Age: 64 Year
  Sex: Female

DRUGS (1)
  1. DUPIXENT [Suspect]
     Active Substance: DUPILUMAB
     Indication: Eczema
     Dosage: 300 MG (FREQUENCY OTHER)
     Route: 058

REACTIONS (3)
  - Eye discharge [Unknown]
  - Condition aggravated [Unknown]
  - Eye discharge [Recovered/Resolved]

NARRATIVE: CASE EVENT DATE: 20221201
